FAERS Safety Report 8549245-X (Version None)
Quarter: 2012Q3

REPORT INFORMATION
  Report Type: 
  Country: None (occurrence: None)
  Receive Date: 20120730
  Receipt Date: 20120725
  Transmission Date: 20120928
  Serious: Yes (Other)
  Sender: FDA-Public Use
  Company Number: PHHY2012BR065123

PATIENT
  Sex: Male

DRUGS (2)
  1. EXELON [Suspect]
     Dosage: 2MG / 120ML
     Route: 048
  2. EXELON [Suspect]
     Dosage: 18MG/ 10CM?
     Route: 062

REACTIONS (5)
  - PALLOR [None]
  - DEMENTIA ALZHEIMER'S TYPE [None]
  - MALAISE [None]
  - FEELING COLD [None]
  - BODY TEMPERATURE DECREASED [None]
